FAERS Safety Report 23086876 (Version 1)
Quarter: 2023Q4

REPORT INFORMATION
  Report Type: Report from Study
  Country: JP (occurrence: JP)
  Receive Date: 20231020
  Receipt Date: 20231020
  Transmission Date: 20240110
  Serious: Yes (Other)
  Sender: FDA-Public Use
  Company Number: JP-JNJFOC-20230522837

PATIENT

DRUGS (1)
  1. SIMPONI [Suspect]
     Active Substance: GOLIMUMAB
     Indication: Rheumatoid arthritis
     Dosage: DOSE UNKNOWN
     Route: 058

REACTIONS (17)
  - Neoplasm malignant [Unknown]
  - Infection [Unknown]
  - Discomfort [Unknown]
  - Benign neoplasm [Unknown]
  - Skin disorder [Unknown]
  - Mediastinal disorder [Unknown]
  - Spinal disorder [Unknown]
  - Respiratory disorder [Unknown]
  - Blood disorder [Unknown]
  - Angiopathy [Unknown]
  - Cardiac disorder [Unknown]
  - Gastrointestinal disorder [Unknown]
  - Renal disorder [Unknown]
  - Urinary tract disorder [Unknown]
  - Immune system disorder [Unknown]
  - Administration site reaction [Unknown]
  - Drug ineffective [Unknown]
